FAERS Safety Report 11386575 (Version 1)
Quarter: 2015Q3

REPORT INFORMATION
  Report Type: Spontaneous
  Country: US (occurrence: None)
  Receive Date: 20150814
  Receipt Date: 20150814
  Transmission Date: 20151125
  Serious: Yes (Death, Hospitalization)
  Sender: FDA-Public Use
  Company Number: None

PATIENT
  Age: 65 Year
  Sex: Male
  Weight: 85.4 kg

DRUGS (1)
  1. GEMCITABINE HYDROCHLORIDE. [Suspect]
     Active Substance: GEMCITABINE HYDROCHLORIDE
     Dates: end: 20150702

REACTIONS (8)
  - Septic shock [None]
  - Fatigue [None]
  - Acute kidney injury [None]
  - Pancreatic carcinoma [None]
  - Ascites [None]
  - Performance status decreased [None]
  - Abdominal distension [None]
  - Peritonitis bacterial [None]

NARRATIVE: CASE EVENT DATE: 20150710
